FAERS Safety Report 5725464-2 (Version None)
Quarter: 2008Q2

REPORT INFORMATION
  Report Type: 
  Country: None (occurrence: None)
  Receive Date: 20080501
  Receipt Date: 20080420
  Transmission Date: 20081010
  Serious: Yes (Other)
  Sender: FDA-Public Use
  Company Number: US-PFIZER INC-2008037513

PATIENT
  Sex: Female
  Weight: 54.545 kg

DRUGS (5)
  1. CHANTIX [Suspect]
     Indication: SMOKING CESSATION THERAPY
     Route: 048
  2. GABAPENTIN [Interacting]
     Indication: BURNING SENSATION
  3. GABAPENTIN [Interacting]
     Indication: PAIN
  4. TRILEPTAL [Interacting]
     Indication: BURNING SENSATION
  5. TRILEPTAL [Interacting]
     Indication: PAIN

REACTIONS (3)
  - DRUG INTERACTION [None]
  - INSOMNIA [None]
  - PAIN [None]
